FAERS Safety Report 12936900 (Version 1)
Quarter: 2016Q4

REPORT INFORMATION
  Report Type: Spontaneous
  Country: JP (occurrence: JP)
  Receive Date: 20161114
  Receipt Date: 20161114
  Transmission Date: 20170207
  Serious: Yes (Other)
  Sender: FDA-Public Use
  Company Number: JP-PFIZER INC-2016524651

PATIENT
  Age: 44 Year
  Sex: Male

DRUGS (2)
  1. LYRICA [Suspect]
     Active Substance: PREGABALIN
     Dosage: UNK
     Route: 048
     Dates: start: 201507, end: 201507
  2. REBAMIPIDE 100MG PFIZER [Suspect]
     Active Substance: REBAMIPIDE
     Dosage: UNK
     Route: 048
     Dates: start: 201507, end: 201507

REACTIONS (2)
  - Agranulocytosis [Unknown]
  - Drug eruption [Unknown]
